APPROVED DRUG PRODUCT: LINAGLIPTIN
Active Ingredient: LINAGLIPTIN
Strength: 5MG
Dosage Form/Route: TABLET;ORAL
Application: A208415 | Product #001 | TE Code: AB
Applicant: AUROBINDO PHARMA LTD
Approved: Nov 3, 2025 | RLD: No | RS: No | Type: RX